FAERS Safety Report 23581533 (Version 2)
Quarter: 2024Q1

REPORT INFORMATION
  Report Type: Spontaneous
  Country: GB (occurrence: GB)
  Receive Date: 20240229
  Receipt Date: 20240308
  Transmission Date: 20240409
  Serious: Yes (Disabling)
  Sender: FDA-Public Use
  Company Number: None

PATIENT
  Sex: Female
  Weight: 103 kg

DRUGS (8)
  1. DOXYCYCLINE [Suspect]
     Active Substance: DOXYCYCLINE
     Indication: Ill-defined disorder
     Dosage: 100 MG (TAKE TWO NOW THEN ONE DAILY FOR 4 DAYS TO TREAT)
     Dates: start: 20240216
  2. AMOXICILLIN [Concomitant]
     Active Substance: AMOXICILLIN
     Indication: Ill-defined disorder
     Dosage: 1 DF, 3X/DAY
     Dates: start: 20240216, end: 20240221
  3. DOXYCYCLINE [Concomitant]
     Active Substance: DOXYCYCLINE
     Indication: Ill-defined disorder
     Dosage: TAKE TWO NOW THEN ONE DAILY FOR 4 DAYS TO TREAT...
     Dates: start: 20240216, end: 20240216
  4. ACETAMINOPHEN [Concomitant]
     Active Substance: ACETAMINOPHEN
     Indication: Ill-defined disorder
     Dosage: ONE OR TWO TO BE TAKEN UPTO FOUR TIMES A DAY
     Dates: start: 20211230
  5. CHLORPHENIRAMINE MALEATE [Concomitant]
     Active Substance: CHLORPHENIRAMINE MALEATE
     Indication: Ill-defined disorder
     Dosage: 1 DF, 3X/DAY AS REQUIRED
     Dates: start: 20211230
  6. ALBUTEROL [Concomitant]
     Active Substance: ALBUTEROL
     Indication: Ill-defined disorder
     Dosage: 2 DF AS NEEDED
     Dates: start: 20240123, end: 20240220
  7. SERTRALINE [Concomitant]
     Active Substance: SERTRALINE HYDROCHLORIDE
     Indication: Ill-defined disorder
     Dosage: UNK, 2X/DAY
     Dates: start: 20230210
  8. FLUTICASONE PROPIONATE\SALMETEROL XINAFOATE [Concomitant]
     Active Substance: FLUTICASONE PROPIONATE\SALMETEROL XINAFOATE
     Indication: Ill-defined disorder
     Dosage: ONE - TWO PUFFS TO BE INHALED TWICE A DAY
     Dates: start: 20230505

REACTIONS (3)
  - Vomiting [Recovered/Resolved]
  - Illness [Unknown]
  - Off label use [Unknown]

NARRATIVE: CASE EVENT DATE: 20240216
